APPROVED DRUG PRODUCT: CITALOPRAM HYDROBROMIDE
Active Ingredient: CITALOPRAM HYDROBROMIDE
Strength: EQ 40MG BASE
Dosage Form/Route: TABLET;ORAL
Application: A077045 | Product #001 | TE Code: AB
Applicant: EPIC PHARMA LLC
Approved: Apr 29, 2005 | RLD: No | RS: No | Type: RX